FAERS Safety Report 5717079-7 (Version None)
Quarter: 2008Q2

REPORT INFORMATION
  Report Type: 
  Country: None (occurrence: None)
  Receive Date: 20080423
  Receipt Date: 20080414
  Transmission Date: 20081010
  Serious: Yes (Hospitalization)
  Sender: FDA-Public Use
  Company Number: 2008BI009919

PATIENT
  Age: 52 Year
  Sex: Male

DRUGS (3)
  1. AVONEX [Suspect]
     Indication: MULTIPLE SCLEROSIS
     Dosage: 30 UG; QW; IM
     Route: 030
     Dates: start: 20080329
  2. PREDNISONE TAB [Concomitant]
  3. BLOOD PRESSURE MEDICATION [Concomitant]

REACTIONS (4)
  - FALL [None]
  - HYPOTENSION [None]
  - INFLUENZA [None]
  - PNEUMONIA [None]
